FAERS Safety Report 9080716 (Version 1)
Quarter: 2013Q1

REPORT INFORMATION
  Report Type: Spontaneous
  Country: US (occurrence: US)
  Receive Date: 20130218
  Receipt Date: 20130218
  Transmission Date: 20140127
  Serious: Yes (Other)
  Sender: FDA-Public Use
  Company Number: US-JNJFOC-20130203009

PATIENT
  Age: 65 Year
  Sex: Male

DRUGS (10)
  1. FLEXERIL [Suspect]
     Indication: PRODUCT USED FOR UNKNOWN INDICATION
     Route: 048
  2. CYMBALTA [Interacting]
     Indication: ANXIETY
     Route: 048
     Dates: start: 201210, end: 201301
  3. CYMBALTA [Interacting]
     Indication: DEPRESSION
     Route: 048
     Dates: start: 201210, end: 201301
  4. CYMBALTA [Interacting]
     Indication: FIBROMYALGIA
     Route: 048
     Dates: start: 201210, end: 201301
  5. LISINOPRIL [Concomitant]
     Route: 065
  6. CELEBREX [Concomitant]
     Route: 065
  7. XANAX [Concomitant]
     Route: 065
  8. FOSAMAX [Concomitant]
     Route: 065
  9. HALOTHANE [Concomitant]
     Route: 065
  10. AMBIEN [Concomitant]
     Route: 065

REACTIONS (5)
  - Serotonin syndrome [Unknown]
  - Drug interaction [Unknown]
  - Erectile dysfunction [Unknown]
  - Increased tendency to bruise [Unknown]
  - Rash generalised [Unknown]
